FAERS Safety Report 10079789 (Version 1)
Quarter: 2014Q2

REPORT INFORMATION
  Report Type: Spontaneous
  Country: ES (occurrence: ES)
  Receive Date: 20140415
  Receipt Date: 20140415
  Transmission Date: 20141212
  Serious: Yes (Other)
  Sender: FDA-Public Use
  Company Number: ES-GLAXOSMITHKLINE-B0985360A

PATIENT
  Age: 56 Year
  Sex: Female

DRUGS (6)
  1. VOTRIENT [Suspect]
     Indication: SARCOMA
     Dosage: 800MG PER DAY
     Route: 048
     Dates: start: 20140318
  2. ASCORBIC ACID [Concomitant]
  3. POTASSIUM BICARBONATE [Concomitant]
  4. OMEPRAZOL [Concomitant]
  5. FUROSEMIDE [Concomitant]
  6. PREDNISONE [Concomitant]

REACTIONS (2)
  - Convulsion [Recovered/Resolved]
  - Loss of consciousness [Unknown]
